FAERS Safety Report 18666641 (Version 1)
Quarter: 2020Q4

REPORT INFORMATION
  Report Type: Spontaneous
  Country: IT (occurrence: IT)
  Receive Date: 20201227
  Receipt Date: 20201227
  Transmission Date: 20210114
  Serious: Yes (Hospitalization)
  Sender: FDA-Public Use
  Company Number: IT-TEVA-2020-IT-1861646

PATIENT
  Age: 87 Year
  Sex: Male

DRUGS (5)
  1. MADOPAR [Concomitant]
     Active Substance: BENSERAZIDE HYDROCHLORIDE\LEVODOPA
  2. PROCAPTAN [Concomitant]
     Active Substance: PERINDOPRIL ERBUMINE
  3. CARDICOR [Concomitant]
     Active Substance: BISOPROLOL
  4. OMNIC [Concomitant]
     Active Substance: TAMSULOSIN HYDROCHLORIDE
  5. TICLOPIDINE [Suspect]
     Active Substance: TICLOPIDINE
     Indication: PLATELET AGGREGATION INHIBITION
     Dosage: UNIT DOSE :  500 MG
     Route: 048
     Dates: start: 20161101, end: 20201128

REACTIONS (2)
  - Anaemia [Recovering/Resolving]
  - Ecchymosis [Recovering/Resolving]

NARRATIVE: CASE EVENT DATE: 20201128
